FAERS Safety Report 6792499-0 (Version None)
Quarter: 2010Q2

REPORT INFORMATION
  Report Type: 
  Country: None (occurrence: None)
  Receive Date: 20100624
  Receipt Date: 20081020
  Transmission Date: 20101027
  Serious: Yes (Other)
  Sender: FDA-Public Use
  Company Number: US-PFIZER INC-2008066525

PATIENT
  Sex: Female
  Weight: 83.9 kg

DRUGS (5)
  1. GEODON [Suspect]
     Indication: BIPOLAR DISORDER
     Dates: start: 20070501, end: 20080601
  2. AMBIEN [Concomitant]
  3. CONCERTA [Concomitant]
  4. SEROQUEL [Concomitant]
  5. LAMICTAL [Concomitant]

REACTIONS (3)
  - DRUG INEFFECTIVE [None]
  - LIPIDS INCREASED [None]
  - TORTICOLLIS [None]
